FAERS Safety Report 10856197 (Version 2)
Quarter: 2015Q1

REPORT INFORMATION
  Report Type: Report from Study
  Country: CA (occurrence: CA)
  Receive Date: 20150223
  Receipt Date: 20150324
  Transmission Date: 20150721
  Serious: Yes (Other)
  Sender: FDA-Public Use
  Company Number: CA-JNJFOC-20150213070

PATIENT
  Age: 61 Year
  Sex: Female

DRUGS (1)
  1. REMICADE [Suspect]
     Active Substance: INFLIXIMAB
     Indication: CROHN^S DISEASE
     Route: 042

REACTIONS (5)
  - Swelling [Unknown]
  - Lupus-like syndrome [Unknown]
  - Surgery [Unknown]
  - Crohn^s disease [Unknown]
  - Anxiety [Unknown]

NARRATIVE: CASE EVENT DATE: 20150107
